FAERS Safety Report 5265774-9 (Version None)
Quarter: 2007Q1

REPORT INFORMATION
  Report Type: 
  Country: None (occurrence: None)
  Receive Date: 20061213
  Receipt Date: 20040726
  Transmission Date: 20070707
  Serious: Yes (Other)
  Sender: FDA-Public Use
  Company Number: 2004UW04717

PATIENT
  Sex: Female

DRUGS (1)
  1. IRESSA [Suspect]
     Indication: NON-SMALL CELL LUNG CANCER STAGE IV
     Dosage: 250 MG PO
     Route: 048
     Dates: start: 20031101

REACTIONS (3)
  - ALOPECIA [None]
  - FATIGUE [None]
  - GAIT DISTURBANCE [None]
